FAERS Safety Report 10050346 (Version 1)
Quarter: 2014Q2

REPORT INFORMATION
  Report Type: Spontaneous
  Country: US (occurrence: US)
  Receive Date: 20140401
  Receipt Date: 20140401
  Transmission Date: 20141212
  Serious: Yes (Other)
  Sender: FDA-Public Use
  Company Number: US-BAYER-2014-048141

PATIENT
  Age: 43 Year
  Sex: Female
  Weight: 92.97 kg

DRUGS (4)
  1. YAZ [Suspect]
  2. YASMIN [Suspect]
  3. IBUPROFEN [Concomitant]
  4. PERCOCET [Concomitant]

REACTIONS (3)
  - Venous thrombosis limb [None]
  - Deep vein thrombosis [None]
  - Thrombosis [None]
